FAERS Safety Report 6725961-7 (Version None)
Quarter: 2010Q2

REPORT INFORMATION
  Report Type: 
  Country: None (occurrence: None)
  Receive Date: 20100514
  Receipt Date: 20070424
  Transmission Date: 20101027
  Serious: Yes (Other)
  Sender: FDA-Public Use
  Company Number: PHHY2010BR25680

PATIENT
  Age: 76 Year
  Sex: Female

DRUGS (1)
  1. DIOVAN [Suspect]
     Indication: HYPERTENSION
     Dosage: 80 MG (1/2 A TABLET DAILY)
     Route: 048
     Dates: start: 20070201

REACTIONS (2)
  - DIZZINESS [None]
  - HYPOGLYCAEMIA [None]
